FAERS Safety Report 8310769-1 (Version None)
Quarter: 2012Q2

REPORT INFORMATION
  Report Type: 
  Country: None (occurrence: None)
  Receive Date: 20120425
  Receipt Date: 20120419
  Transmission Date: 20120825
  Serious: Yes (Other)
  Sender: FDA-Public Use
  Company Number: ES-ABBOTT-12P-144-0926927-00

PATIENT
  Age: 49 Year
  Sex: Male

DRUGS (3)
  1. DEPAKINE 500 [Concomitant]
     Indication: EPILEPSY
  2. TOPAMAX [Concomitant]
     Indication: EPILEPSY
  3. HUMIRA [Suspect]
     Indication: ANKYLOSING SPONDYLITIS
     Dates: start: 20120301, end: 20120401

REACTIONS (3)
  - ERYTHEMA [None]
  - RASH MACULAR [None]
  - EPILEPSY [None]
